FAERS Safety Report 24270513 (Version 1)
Quarter: 2024Q3

REPORT INFORMATION
  Report Type: Spontaneous
  Country: US (occurrence: US)
  Receive Date: 20240831
  Receipt Date: 20240831
  Transmission Date: 20241017
  Serious: Yes (Hospitalization, Disabling, Other)
  Sender: GLAXOSMITHKLINE
  Company Number: US-GLAXOSMITHKLINE-US2024AMR105800

PATIENT

DRUGS (1)
  1. NUCALA [Suspect]
     Active Substance: MEPOLIZUMAB
     Indication: Asthma
     Dosage: UNK

REACTIONS (18)
  - Mobility decreased [Unknown]
  - Myelitis transverse [Unknown]
  - Paralysis [Unknown]
  - Renal failure [Unknown]
  - Disability [Unknown]
  - Back pain [Unknown]
  - Neck pain [Unknown]
  - Herpes simplex [Unknown]
  - Dyspnoea [Unknown]
  - Abdominal discomfort [Unknown]
  - Bladder disorder [Unknown]
  - Urinary incontinence [Unknown]
  - Loss of personal independence in daily activities [Unknown]
  - Limb discomfort [Not Recovered/Not Resolved]
  - Ill-defined disorder [Unknown]
  - Impaired driving ability [Unknown]
  - Fine motor skill dysfunction [Unknown]
  - Product administered at inappropriate site [Unknown]
